FAERS Safety Report 5257943-9 (Version None)
Quarter: 2007Q1

REPORT INFORMATION
  Report Type: 
  Country: None (occurrence: None)
  Receive Date: 20070307
  Receipt Date: 20061102
  Transmission Date: 20070707
  Serious: No
  Sender: FDA-Public Use
  Company Number: US-GLAXOSMITHKLINE-A0626039A

PATIENT
  Age: 40 Year
  Sex: Male

DRUGS (7)
  1. REQUIP [Suspect]
     Indication: RESTLESS LEGS SYNDROME
     Dosage: .25MG PER DAY
     Route: 048
  2. BENZODIAZEPINE [Concomitant]
  3. GLUCOPHAGE [Concomitant]
  4. ACTOS [Concomitant]
  5. TOPROL-XL [Concomitant]
  6. PLAVIX [Concomitant]
  7. ANTIDEPRESSANT (UNSPECIFIED) [Concomitant]

REACTIONS (1)
  - FATIGUE [None]
